FAERS Safety Report 5720222-7 (Version None)
Quarter: 2008Q2

REPORT INFORMATION
  Report Type: 
  Country: None (occurrence: None)
  Receive Date: 20080428
  Receipt Date: 20070926
  Transmission Date: 20081010
  Serious: No
  Sender: FDA-Public Use
  Company Number: US-AMGEN-US242683

PATIENT
  Sex: Male
  Weight: 124.9 kg

DRUGS (7)
  1. SENSIPAR [Suspect]
     Indication: HYPERPARATHYROIDISM SECONDARY
     Route: 065
     Dates: start: 20070221
  2. ALEVE [Suspect]
     Dates: start: 20070221, end: 20070516
  3. TRAMADOL HCL [Suspect]
     Dates: start: 20070221, end: 20070516
  4. PROTONIX [Concomitant]
  5. INSULIN [Concomitant]
  6. NIFEREX [Concomitant]
  7. TORSEMIDE [Concomitant]

REACTIONS (5)
  - DECREASED APPETITE [None]
  - DIZZINESS [None]
  - FLANK PAIN [None]
  - GAIT DISTURBANCE [None]
  - NAUSEA [None]
